FAERS Safety Report 7492766-1 (Version None)
Quarter: 2011Q2

REPORT INFORMATION
  Report Type: 
  Country: None (occurrence: None)
  Receive Date: 20110519
  Receipt Date: 20110215
  Transmission Date: 20111010
  Serious: Yes (Death, Other)
  Sender: FDA-Public Use
  Company Number: US-BAYER-200923798NA

PATIENT
  Age: 50 Year
  Sex: Male
  Weight: 69.8 kg

DRUGS (38)
  1. UNSPECIFIED GADOLINIUM BASED CONTRAST AGENT [Suspect]
     Indication: NUCLEAR MAGNETIC RESONANCE IMAGING
     Dosage: UNK
     Dates: start: 20011217, end: 20011217
  2. CLONIDINE [Concomitant]
  3. EPOGEN [Concomitant]
  4. IMURAN [Concomitant]
  5. MAGNEVIST [Suspect]
     Dosage: 48 ML, ONCE
     Route: 042
     Dates: start: 20000505, end: 20000505
  6. PREDNISONE [Concomitant]
  7. LANTHANUM CARBONATE [Concomitant]
  8. PERCOCET [Concomitant]
  9. ZEMPLAR [Concomitant]
  10. MAGNEVIST [Suspect]
     Dosage: 39 ML, ONCE
     Dates: start: 20060726, end: 20060726
  11. RENAGEL [Concomitant]
  12. PROCARDIA [Concomitant]
  13. VANCOMYCIN [Concomitant]
  14. DIGOXIN [Concomitant]
  15. UNSPECIFIED GADOLINIUM BASED CONTRAST AGENT [Suspect]
     Indication: ANGIOGRAM
     Dates: start: 20001001, end: 20001001
  16. FLORINEF [Concomitant]
  17. DARBEPOETIN ALFA [Concomitant]
  18. MAGNEVIST [Suspect]
     Indication: NUCLEAR MAGNETIC RESONANCE IMAGING
     Dosage: 48 ML, ONCE
     Route: 042
     Dates: start: 20000205, end: 20000205
  19. MAGNEVIST [Suspect]
     Dosage: 40 ML, ONCE
     Dates: start: 20060809, end: 20060809
  20. OPTIMARK [Suspect]
     Indication: NUCLEAR MAGNETIC RESONANCE IMAGING
  21. MINOXIDIL [Concomitant]
  22. HECTOROL [Concomitant]
  23. MICARDIS [Concomitant]
  24. CORTISONE ACETATE [Concomitant]
  25. UNSPECIFIED GADOLINIUM BASED CONTRAST AGENT [Suspect]
     Dosage: UNK
     Dates: start: 20060714, end: 20060714
  26. MULTIHANCE [Suspect]
     Indication: NUCLEAR MAGNETIC RESONANCE IMAGING
  27. PROHANCE [Suspect]
     Indication: NUCLEAR MAGNETIC RESONANCE IMAGING
  28. PLAQUENIL [Concomitant]
  29. ASPIRIN [Concomitant]
  30. PHOSLO [Concomitant]
  31. FERRLECIT [Concomitant]
  32. COREG [Concomitant]
  33. AMIODARONE HCL [Concomitant]
  34. OMNISCAN [Suspect]
     Indication: NUCLEAR MAGNETIC RESONANCE IMAGING
  35. RENAPHRO [Concomitant]
  36. NORVASC [Concomitant]
  37. TUMS [CALCIUM CARBONATE] [Concomitant]
  38. LOPRESSOR [Concomitant]

REACTIONS (18)
  - PAIN [None]
  - SKIN INDURATION [None]
  - NEPHROGENIC SYSTEMIC FIBROSIS [None]
  - GENERAL PHYSICAL HEALTH DETERIORATION [None]
  - SKIN HYPERPIGMENTATION [None]
  - MOBILITY DECREASED [None]
  - SKIN HYPERTROPHY [None]
  - JOINT STIFFNESS [None]
  - JOINT RANGE OF MOTION DECREASED [None]
  - MUSCULOSKELETAL STIFFNESS [None]
  - GAIT DISTURBANCE [None]
  - SKIN FIBROSIS [None]
  - FIBROSIS [None]
  - MUSCLE CONTRACTIONS INVOLUNTARY [None]
  - MUSCULAR WEAKNESS [None]
  - OEDEMA PERIPHERAL [None]
  - ARTHRALGIA [None]
  - SKIN DISCOLOURATION [None]
